FAERS Safety Report 9476835 (Version 1)
Quarter: 2013Q3

REPORT INFORMATION
  Report Type: Spontaneous
  Country: US (occurrence: US)
  Receive Date: 20130826
  Receipt Date: 20130826
  Transmission Date: 20140515
  Serious: No
  Sender: FDA-Public Use
  Company Number: US-TARO-2012P1064297

PATIENT
  Age: 72 Year
  Sex: Male
  Weight: 78.47 kg

DRUGS (12)
  1. CLOBETASOL PROPIONATE CREAM [Suspect]
     Route: 061
     Dates: start: 2011, end: 201211
  2. METFORMIN [Concomitant]
  3. LYSINE [Concomitant]
  4. VITAMIN A [Concomitant]
  5. METOPROLOL [Concomitant]
  6. GABAPENTIN [Concomitant]
  7. SIMVASTATIN [Concomitant]
  8. TRAZODONE [Concomitant]
  9. CLONAZEPAM [Concomitant]
  10. OXYBUTYNIN [Concomitant]
  11. LISINOPRIL [Concomitant]
  12. ASPIRIN [Concomitant]

REACTIONS (9)
  - Pain [Recovered/Resolved]
  - Application site erosion [Recovering/Resolving]
  - Rash macular [Recovering/Resolving]
  - Application site haemorrhage [Recovering/Resolving]
  - Limb injury [Recovering/Resolving]
  - Incorrect drug administration duration [Unknown]
  - Thermal burn [Not Recovered/Not Resolved]
  - Scar [Not Recovered/Not Resolved]
  - Burning sensation [Not Recovered/Not Resolved]
